FAERS Safety Report 14681850 (Version 1)
Quarter: 2018Q1

REPORT INFORMATION
  Report Type: Spontaneous
  Country: US (occurrence: US)
  Receive Date: 20180326
  Receipt Date: 20180326
  Transmission Date: 20180509
  Serious: No
  Sender: FDA-Public Use
  Company Number: US-JAZZ-2017-US-017390

PATIENT
  Sex: Male

DRUGS (2)
  1. CLOZAPINE ODT [Suspect]
     Active Substance: CLOZAPINE
     Indication: DEPRESSION
  2. CLOZAPINE ODT [Suspect]
     Active Substance: CLOZAPINE
     Indication: SOMNOLENCE
     Dosage: 100 MG, UNK
     Route: 048

REACTIONS (1)
  - Unevaluable event [Unknown]
